FAERS Safety Report 18035621 (Version 1)
Quarter: 2020Q3

REPORT INFORMATION
  Report Type: Spontaneous
  Country: US (occurrence: US)
  Receive Date: 20200717
  Receipt Date: 20200717
  Transmission Date: 20201103
  Serious: Yes (Other)
  Sender: FDA-Public Use
  Company Number: US-ROCHE-2642947

PATIENT
  Sex: Male

DRUGS (1)
  1. ROZLYTREK [Suspect]
     Active Substance: ENTRECTINIB
     Indication: PANCREATIC CARCINOMA
     Route: 048
     Dates: start: 20200708

REACTIONS (5)
  - Hypotension [Recovered/Resolved]
  - Blood pressure increased [Recovered/Resolved]
  - Fatigue [Unknown]
  - Off label use [Unknown]
  - Intentional product use issue [Unknown]
